FAERS Safety Report 12326758 (Version 1)
Quarter: 2016Q2

REPORT INFORMATION
  Report Type: Spontaneous
  Country: US (occurrence: US)
  Receive Date: 20160503
  Receipt Date: 20160503
  Transmission Date: 20160815
  Serious: Yes (Other)
  Sender: FDA-Public Use
  Company Number: US-PERRIGO-16US015580

PATIENT
  Sex: Female

DRUGS (1)
  1. LICE SHAMPOO [Suspect]
     Active Substance: PIPERONYL BUTOXIDE\PYRETHRUM EXTRACT
     Indication: LICE INFESTATION
     Dosage: AS DIRECTED
     Route: 061
     Dates: start: 201604

REACTIONS (4)
  - Eye burns [Unknown]
  - Visual impairment [Unknown]
  - Blindness [Unknown]
  - Accidental exposure to product [Unknown]

NARRATIVE: CASE EVENT DATE: 201604
